FAERS Safety Report 10291562 (Version 1)
Quarter: 2014Q3

REPORT INFORMATION
  Report Type: Spontaneous
  Country: JP (occurrence: JP)
  Receive Date: 20140710
  Receipt Date: 20140710
  Transmission Date: 20150326
  Serious: Yes (Life-Threatening, Hospitalization)
  Sender: FDA-Public Use
  Company Number: PHHY2014JP082627

PATIENT
  Age: 54 Year
  Sex: Male
  Weight: 98 kg

DRUGS (6)
  1. CLINDAMYCIN [Concomitant]
     Active Substance: CLINDAMYCIN\CLINDAMYCIN PHOSPHATE
     Indication: MYOSITIS
  2. GAMMA GLOBULIN [Concomitant]
     Active Substance: IMMUNE GLOBULIN NOS
     Dosage: 7.5 G, PER DAY
  3. HYDROCORTISONE. [Suspect]
     Active Substance: HYDROCORTISONE
     Dosage: 300 MG, PER DAY
  4. AMPICILINA + SULBACTAM [Concomitant]
     Indication: MYOSITIS
  5. CLINDAMYCIN [Concomitant]
     Active Substance: CLINDAMYCIN\CLINDAMYCIN PHOSPHATE
     Indication: NECROTISING FASCIITIS
     Dosage: 2.4 G, PER DAY
     Route: 042
  6. AMPICILINA + SULBACTAM [Concomitant]
     Indication: NECROTISING FASCIITIS
     Dosage: 12 G, PER DAY
     Route: 042

REACTIONS (5)
  - Aspergilloma [Recovered/Resolved]
  - Bronchopulmonary aspergillosis [Recovered/Resolved]
  - Hypoxia [Recovered/Resolved]
  - Bronchiolitis [Recovered/Resolved]
  - Lung consolidation [Recovered/Resolved]
